FAERS Safety Report 13360740 (Version 2)
Quarter: 2017Q3

REPORT INFORMATION
  Report Type: Spontaneous
  Country: CA (occurrence: CA)
  Receive Date: 20170322
  Receipt Date: 20170831
  Transmission Date: 20171127
  Serious: Yes (Hospitalization, Other)
  Sender: FDA-Public Use
  Company Number: CA-SA-2017SA043465

PATIENT
  Age: 64 Year
  Sex: Female
  Weight: 85 kg

DRUGS (45)
  1. ARAVA [Suspect]
     Active Substance: LEFLUNOMIDE
     Indication: RHEUMATOID ARTHRITIS
     Route: 048
  2. METHOTREXATE. [Suspect]
     Active Substance: METHOTREXATE
     Indication: RHEUMATOID ARTHRITIS
     Dosage: 17.5 TO 25 MG FOR EVERY WEEK.
     Route: 065
     Dates: start: 200711, end: 201207
  3. METHOTREXATE SODIUM. [Suspect]
     Active Substance: METHOTREXATE SODIUM
     Indication: RHEUMATOID ARTHRITIS
     Route: 065
  4. LYRICA [Concomitant]
     Active Substance: PREGABALIN
     Indication: PAIN
     Route: 048
  5. METHYLPREDNISOLONE ACETATE. [Concomitant]
     Active Substance: METHYLPREDNISOLONE ACETATE
     Indication: SLEEP DISORDER
     Route: 058
  6. PLAQUENIL [Suspect]
     Active Substance: HYDROXYCHLOROQUINE SULFATE
     Indication: SPINAL OSTEOARTHRITIS
     Route: 048
     Dates: end: 200802
  7. ORENCIA [Suspect]
     Active Substance: ABATACEPT
     Indication: SPINAL OSTEOARTHRITIS
     Route: 065
     Dates: end: 201412
  8. METHYLPREDNISOLONE ACETATE. [Concomitant]
     Active Substance: METHYLPREDNISOLONE ACETATE
     Indication: PAIN
     Route: 030
  9. TYLENOL [Concomitant]
     Active Substance: ACETAMINOPHEN
     Route: 065
  10. ARAVA [Suspect]
     Active Substance: LEFLUNOMIDE
     Indication: SPINAL OSTEOARTHRITIS
     Route: 048
  11. PLAQUENIL [Suspect]
     Active Substance: HYDROXYCHLOROQUINE SULFATE
     Indication: SPINAL OSTEOARTHRITIS
     Route: 048
     Dates: start: 200803, end: 201008
  12. ERGOCALCIFEROL. [Concomitant]
     Active Substance: ERGOCALCIFEROL
     Route: 065
  13. METFORMIN [Concomitant]
     Active Substance: METFORMIN HYDROCHLORIDE
     Indication: TYPE 2 DIABETES MELLITUS
     Route: 065
  14. METHYLPREDNISOLONE ACETATE. [Concomitant]
     Active Substance: METHYLPREDNISOLONE ACETATE
     Indication: SLEEP DISORDER
     Route: 030
  15. PREMARIN [Concomitant]
     Active Substance: ESTROGENS, CONJUGATED
     Route: 065
  16. VAGIFEM [Concomitant]
     Active Substance: ESTRADIOL
     Route: 065
  17. PLAQUENIL [Suspect]
     Active Substance: HYDROXYCHLOROQUINE SULFATE
     Indication: RHEUMATOID ARTHRITIS
     Route: 048
     Dates: start: 200803, end: 201008
  18. HUMIRA [Suspect]
     Active Substance: ADALIMUMAB
     Indication: RHEUMATOID ARTHRITIS
     Dosage: SOLUTION SUBCUTANEOUS
     Route: 065
  19. SULFASALAZINE. [Suspect]
     Active Substance: SULFASALAZINE
     Indication: RHEUMATOID ARTHRITIS
     Route: 065
     Dates: start: 200701, end: 200706
  20. METFORMIN [Concomitant]
     Active Substance: METFORMIN HYDROCHLORIDE
     Indication: TYPE 2 DIABETES MELLITUS
     Route: 065
  21. METHYLPREDNISOLONE ACETATE. [Concomitant]
     Active Substance: METHYLPREDNISOLONE ACETATE
     Indication: PAIN
     Route: 058
  22. LEFLUNOMIDE. [Suspect]
     Active Substance: LEFLUNOMIDE
     Route: 048
     Dates: start: 200706, end: 200708
  23. ACLASTA [Suspect]
     Active Substance: ZOLEDRONIC ACID
     Indication: RHEUMATOID ARTHRITIS
     Route: 042
  24. HUMIRA [Suspect]
     Active Substance: ADALIMUMAB
     Indication: SPINAL OSTEOARTHRITIS
     Dosage: SOLUTION SUBCUTANEOUS
     Route: 065
  25. METHOTREXATE SODIUM. [Suspect]
     Active Substance: METHOTREXATE SODIUM
     Indication: SPINAL OSTEOARTHRITIS
     Route: 065
  26. ORENCIA [Suspect]
     Active Substance: ABATACEPT
     Indication: RHEUMATOID ARTHRITIS
     Route: 065
     Dates: end: 201412
  27. LORAZEPAM. [Concomitant]
     Active Substance: LORAZEPAM
     Route: 065
  28. METHYLPREDNISOLONE ACETATE. [Concomitant]
     Active Substance: METHYLPREDNISOLONE ACETATE
     Indication: PAIN IN EXTREMITY
     Route: 030
  29. METHYLPREDNISOLONE ACETATE. [Concomitant]
     Active Substance: METHYLPREDNISOLONE ACETATE
     Indication: SLEEP DISORDER
     Route: 030
  30. METHYLPREDNISOLONE ACETATE. [Concomitant]
     Active Substance: METHYLPREDNISOLONE ACETATE
     Indication: PAIN IN EXTREMITY
     Route: 030
  31. NORTRIPTYLINE [Concomitant]
     Active Substance: NORTRIPTYLINE
     Indication: SLEEP DISORDER
     Route: 065
  32. NORTRIPTYLINE [Concomitant]
     Active Substance: NORTRIPTYLINE
     Indication: PAIN
     Route: 065
  33. NORTRIPTYLINE [Concomitant]
     Active Substance: NORTRIPTYLINE
     Indication: SLEEP DISORDER
     Route: 065
  34. NORTRIPTYLINE HYDROCHLORIDE. [Concomitant]
     Active Substance: NORTRIPTYLINE HYDROCHLORIDE
     Route: 065
  35. ACTONEL [Concomitant]
     Active Substance: RISEDRONATE SODIUM
     Route: 065
  36. METHYLPREDNISOLONE ACETATE. [Concomitant]
     Active Substance: METHYLPREDNISOLONE ACETATE
     Indication: PAIN
     Route: 030
  37. METHYLPREDNISOLONE ACETATE. [Concomitant]
     Active Substance: METHYLPREDNISOLONE ACETATE
     Indication: PAIN IN EXTREMITY
     Route: 058
  38. NORTRIPTYLINE [Concomitant]
     Active Substance: NORTRIPTYLINE
     Indication: PAIN
     Route: 065
  39. ARAVA [Suspect]
     Active Substance: LEFLUNOMIDE
     Indication: SPINAL OSTEOARTHRITIS
     Route: 048
  40. ARAVA [Suspect]
     Active Substance: LEFLUNOMIDE
     Indication: RHEUMATOID ARTHRITIS
     Route: 048
  41. PLAQUENIL [Suspect]
     Active Substance: HYDROXYCHLOROQUINE SULFATE
     Indication: RHEUMATOID ARTHRITIS
     Route: 048
     Dates: end: 200802
  42. ENBREL [Suspect]
     Active Substance: ETANERCEPT
     Indication: SPINAL OSTEOARTHRITIS
     Route: 065
  43. ENBREL [Suspect]
     Active Substance: ETANERCEPT
     Indication: RHEUMATOID ARTHRITIS
     Route: 065
  44. TRAMACET [Suspect]
     Active Substance: ACETAMINOPHEN\TRAMADOL
     Indication: RHEUMATOID ARTHRITIS
     Route: 065
  45. CALCIUM [Concomitant]
     Active Substance: CALCIUM
     Route: 065

REACTIONS (27)
  - Spinal operation [Unknown]
  - Spinal column stenosis [Unknown]
  - Osteoarthritis [Unknown]
  - Treatment failure [Unknown]
  - Procedural pain [Unknown]
  - General physical health deterioration [Unknown]
  - Neuropathy peripheral [Unknown]
  - Sleep disorder [Unknown]
  - Bone density abnormal [Unknown]
  - Condition aggravated [Not Recovered/Not Resolved]
  - Pain [Unknown]
  - Drug ineffective [Unknown]
  - Knee arthroplasty [Unknown]
  - Osteopenia [Unknown]
  - Gait disturbance [Unknown]
  - Pain in extremity [Unknown]
  - Carpal tunnel syndrome [Unknown]
  - Hepatic enzyme increased [Unknown]
  - Liver function test abnormal [Unknown]
  - Poor venous access [Not Recovered/Not Resolved]
  - Back pain [Recovering/Resolving]
  - Blood pressure abnormal [Unknown]
  - Diarrhoea [Unknown]
  - Rheumatoid arthritis [Unknown]
  - Fibromyalgia [Unknown]
  - Red blood cell sedimentation rate abnormal [Unknown]
  - Alanine aminotransferase abnormal [Not Recovered/Not Resolved]
